FAERS Safety Report 8523049-6 (Version None)
Quarter: 2012Q3

REPORT INFORMATION
  Report Type: 
  Country: None (occurrence: None)
  Receive Date: 20120720
  Receipt Date: 20101209
  Transmission Date: 20120928
  Serious: Yes (Hospitalization, Other)
  Sender: FDA-Public Use
  Company Number: US-BAYER-201013310NA

PATIENT
  Age: 17 Year
  Sex: Female
  Weight: 79.365 kg

DRUGS (14)
  1. YASMIN [Suspect]
     Indication: MENSTRUATION IRREGULAR
     Route: 048
     Dates: start: 20040101, end: 20070101
  2. SINGULAIR [Concomitant]
     Indication: PRODUCT USED FOR UNKNOWN INDICATION
  3. ALUDROX [ALUMINIUM HYDROXIDE,MAGNESIUM HYDROXIDE] [Concomitant]
  4. NAPROSYN [Concomitant]
  5. PRILOSEC [Concomitant]
     Indication: GASTROOESOPHAGEAL REFLUX DISEASE
  6. AMITRIPTYLINE HCL [Concomitant]
     Indication: PRODUCT USED FOR UNKNOWN INDICATION
     Dates: start: 20060601
  7. ADVAIR DISKUS 100/50 [Concomitant]
     Indication: PRODUCT USED FOR UNKNOWN INDICATION
     Dates: start: 20000101
  8. ALIMENTARY TRACT AND METABOLISM [Concomitant]
  9. ADDERALL XR 10 [Concomitant]
     Indication: PRODUCT USED FOR UNKNOWN INDICATION
     Dates: start: 20000101
  10. ZITHROMAX [Concomitant]
     Indication: HYPERSENSITIVITY
  11. CALCIUM CARBONATE [Concomitant]
     Indication: CONSTIPATION
  12. ALBUTEROL INHALANT [Concomitant]
     Indication: DYSPNOEA
     Dosage: UNK UNK, PRN
     Route: 045
  13. YASMIN [Suspect]
     Indication: CONTRACEPTION
     Route: 048
     Dates: start: 20080220
  14. MAGNESIUM HYDROXIDE TAB [Concomitant]
     Indication: CONSTIPATION

REACTIONS (7)
  - WEIGHT DECREASED [None]
  - ABDOMINAL PAIN [None]
  - BILIARY DYSKINESIA [None]
  - VOMITING [None]
  - ABDOMINAL PAIN UPPER [None]
  - REGURGITATION [None]
  - SPLENOMEGALY [None]
